FAERS Safety Report 15400114 (Version 1)
Quarter: 2018Q3

REPORT INFORMATION
  Report Type: Spontaneous
  Country: US (occurrence: US)
  Receive Date: 20180919
  Receipt Date: 20180919
  Transmission Date: 20181010
  Serious: No
  Sender: FDA-Public Use
  Company Number: US-BION-007057

PATIENT
  Sex: Female
  Weight: 77.11 kg

DRUGS (1)
  1. ZYRTEC [Suspect]
     Active Substance: CETIRIZINE HYDROCHLORIDE
     Indication: SNEEZING
     Dosage: 1 LIQUID GEL ONCE
     Route: 048
     Dates: start: 20180315, end: 20180315

REACTIONS (1)
  - Drug ineffective [Not Recovered/Not Resolved]
